FAERS Safety Report 14118989 (Version 1)
Quarter: 2017Q4

REPORT INFORMATION
  Report Type: Spontaneous
  Country: US (occurrence: None)
  Receive Date: 20171023
  Receipt Date: 20171023
  Transmission Date: 20180321
  Serious: Yes (Hospitalization)
  Sender: FDA-Public Use
  Company Number: None

PATIENT
  Age: 58 Year
  Sex: Female

DRUGS (3)
  1. TACROLIMUS 1MG [Suspect]
     Active Substance: TACROLIMUS
     Indication: RENAL TRANSPLANT
     Dosage: 1MG AND 0.5MG 1BID PO
     Route: 048
     Dates: start: 20170303
  2. TACROLIMUS 0.5MG [Suspect]
     Active Substance: TACROLIMUS
     Indication: RENAL TRANSPLANT
     Dosage: 0.5MG 1BID PO
     Route: 048
     Dates: start: 20170913
  3. ZORTRESS [Suspect]
     Active Substance: EVEROLIMUS
     Indication: RENAL TRANSPLANT
     Dosage: 0.5MG 2BID PO
     Route: 048
     Dates: start: 20170913

REACTIONS (1)
  - Sepsis [None]

NARRATIVE: CASE EVENT DATE: 20171015
